FAERS Safety Report 15772008 (Version 1)
Quarter: 2018Q4

REPORT INFORMATION
  Report Type: Report from Study
  Country: JP (occurrence: JP)
  Receive Date: 20181228
  Receipt Date: 20181228
  Transmission Date: 20190205
  Serious: Yes (Hospitalization)
  Sender: FDA-Public Use
  Company Number: JP-ACTELION-A-CH2018-184202

PATIENT
  Age: 60 Year
  Sex: Male

DRUGS (11)
  1. LANSOPRAZOLE. [Concomitant]
     Active Substance: LANSOPRAZOLE
  2. OPSUMIT [Suspect]
     Active Substance: MACITENTAN
     Indication: PULMONARY ARTERIAL HYPERTENSION
     Dosage: 10 MG, QD
     Route: 048
     Dates: start: 20161107, end: 20180502
  3. ARTIST [Concomitant]
     Active Substance: CARVEDILOL
  4. AMIODARONE [Concomitant]
     Active Substance: AMIODARONE
  5. XARELTO [Concomitant]
     Active Substance: RIVAROXABAN
  6. TAKELDA [Concomitant]
     Active Substance: ASPIRIN\LANSOPRAZOLE
  7. AMLODIPINE [Concomitant]
     Active Substance: AMLODIPINE BESYLATE
  8. AZOSEMIDE [Concomitant]
     Active Substance: AZOSEMIDE
  9. AZILVA [Concomitant]
     Active Substance: AZILSARTAN KAMEDOXOMIL
  10. ROSUVASTATIN CALCIUM. [Concomitant]
     Active Substance: ROSUVASTATIN CALCIUM
  11. EPADEL-S [Concomitant]
     Active Substance: ICOSAPENT ETHYL

REACTIONS (2)
  - Atrial fibrillation [Recovering/Resolving]
  - Cardiac failure [Recovering/Resolving]

NARRATIVE: CASE EVENT DATE: 20180419
